FAERS Safety Report 20415921 (Version 7)
Quarter: 2022Q2

REPORT INFORMATION
  Report Type: Report from Study
  Country: CA (occurrence: CA)
  Receive Date: 20220202
  Receipt Date: 20220530
  Transmission Date: 20220721
  Serious: Yes (Hospitalization, Other)
  Sender: FDA-Public Use
  Company Number: CA-JNJFOC-20210508166

PATIENT
  Age: 55 Year
  Sex: Female

DRUGS (2)
  1. STELARA [Suspect]
     Active Substance: USTEKINUMAB
     Indication: Crohn^s disease
     Dosage: PATIENT HAD INFUSION ON 26-JAN-2022?EXPIRY DATE :31-JUL-2024
     Route: 058
  2. STELARA [Suspect]
     Active Substance: USTEKINUMAB
     Dosage: EXPIRY DATE:31-OCT-2024
     Route: 058
     Dates: start: 20190303

REACTIONS (5)
  - Postoperative wound infection [Recovering/Resolving]
  - Crohn^s disease [Recovering/Resolving]
  - Intestinal operation [Unknown]
  - Impaired healing [Not Recovered/Not Resolved]
  - Constipation [Recovered/Resolved]

NARRATIVE: CASE EVENT DATE: 20210101
